FAERS Safety Report 9195905 (Version 3)
Quarter: 2013Q4

REPORT INFORMATION
  Report Type: Spontaneous
  Country: US (occurrence: None)
  Receive Date: 20120703
  Receipt Date: 20131226
  Transmission Date: 20140711
  Serious: No
  Sender: FDA-Public Use
  Company Number: PHEH2012US010370

PATIENT
  Age: 44 Year
  Sex: Female
  Weight: 65.8 kg

DRUGS (1)
  1. GILENYA (FTY) CAPSULE, 0.5MG [Suspect]
     Indication: MULTIPLE SCLEROSIS
     Route: 048
     Dates: start: 20120504

REACTIONS (5)
  - Menstruation irregular [None]
  - Fatigue [None]
  - Vaginal haemorrhage [None]
  - Cerumen impaction [None]
  - Dizziness [None]
